FAERS Safety Report 23971919 (Version 2)
Quarter: 2024Q3

REPORT INFORMATION
  Report Type: Report from Study
  Country: US (occurrence: US)
  Receive Date: 20240613
  Receipt Date: 20240826
  Transmission Date: 20241017
  Serious: Yes (Other)
  Sender: PFIZER
  Company Number: US-PFIZER INC-202400105855

PATIENT
  Age: 80 Year
  Sex: Female

DRUGS (4)
  1. IBRANCE [Suspect]
     Active Substance: PALBOCICLIB
     Dosage: 125 MG, CYCLIC (125MG ONCE DAILY BY MOUTH ON DAYS 1-21 EVERY 28 DAYS)
     Route: 048
     Dates: start: 20240430, end: 20240513
  2. IBRANCE [Suspect]
     Active Substance: PALBOCICLIB
     Dosage: 100 MG, CYCLIC (100 MG DAILY D1-21 EVERY 28 DAYS)
     Dates: start: 20240607
  3. IBRANCE [Suspect]
     Active Substance: PALBOCICLIB
     Dosage: 75MG DAILY X 3 WEEKS ON, ONE WEEK OFF
     Dates: start: 20240706
  4. LETROZOLE [Concomitant]
     Active Substance: LETROZOLE
     Dosage: UNK

REACTIONS (8)
  - Blood potassium decreased [Recovered/Resolved]
  - Decreased appetite [Not Recovered/Not Resolved]
  - Fatigue [Not Recovered/Not Resolved]
  - Oropharyngeal pain [Recovering/Resolving]
  - Cough [Not Recovered/Not Resolved]
  - Nasal congestion [Recovering/Resolving]
  - Taste disorder [Not Recovered/Not Resolved]
  - Full blood count abnormal [Unknown]
